FAERS Safety Report 17658981 (Version 2)
Quarter: 2020Q2

REPORT INFORMATION
  Report Type: Spontaneous
  Country: US (occurrence: US)
  Receive Date: 20200413
  Receipt Date: 20200428
  Transmission Date: 20200713
  Serious: No
  Sender: FDA-Public Use
  Company Number: US-ALEMBIC PHARMACUETICALS LIMITED-2020SCAL000139

PATIENT

DRUGS (13)
  1. ARTIFICIAL TEARS [HYPROMELLOSE] [Concomitant]
     Indication: DRY EYE
     Dosage: UNK
     Dates: start: 202002
  2. LUTEIN + [Concomitant]
     Indication: EYE DISORDER
     Dosage: 4 MILLIGRAM, OD
  3. MOXIFLOXACIN OPHTHALMIC SOLUTION 0.5% [Suspect]
     Active Substance: MOXIFLOXACIN
     Indication: SUPERFICIAL INJURY OF EYE
     Dosage: 1 DROP 3 TIMES A DAY
     Route: 047
     Dates: start: 20200320
  4. MOXIFLOXACIN OPHTHALMIC SOLUTION 0.5% [Suspect]
     Active Substance: MOXIFLOXACIN
     Indication: INJURY CORNEAL
  5. IRON [Concomitant]
     Active Substance: IRON
     Indication: IRON DEFICIENCY
     Dosage: 325 MICROGRAM
  6. MOXIFLOXACIN OPHTHALMIC SOLUTION 0.5% [Suspect]
     Active Substance: MOXIFLOXACIN
     Indication: EYE INFECTION
     Dosage: UNK, QID
     Route: 047
     Dates: start: 20200310
  7. DOXAZOSIN [Concomitant]
     Active Substance: DOXAZOSIN MESYLATE
     Indication: BLOOD PRESSURE ABNORMAL
     Dosage: 2 MILLIGRAM, OD
     Route: 048
  8. FOLIC ACID. [Concomitant]
     Active Substance: FOLIC ACID
     Indication: IRON DEFICIENCY
     Dosage: 800 MICROGRAM, OD
  9. INVELTYS [Concomitant]
     Active Substance: LOTEPREDNOL ETABONATE
     Indication: EYE INFLAMMATION
     Dosage: 1 DROP 2 TIMES A DAY
     Dates: start: 20200325
  10. REFRESH OPTIVE [Concomitant]
     Active Substance: CARBOXYMETHYLCELLULOSE SODIUM\GLYCERIN
     Indication: DRY EYE
     Dosage: UNK
     Dates: start: 202002
  11. RANITIDINE. [Concomitant]
     Active Substance: RANITIDINE
     Indication: DYSPEPSIA
     Dosage: 10 MILLIGRAM, OD
  12. LAMOTRIGINE. [Concomitant]
     Active Substance: LAMOTRIGINE
     Indication: SEIZURE
     Dosage: 100 MILLIGRAM, OD
  13. BABY ASPIRIN [Concomitant]
     Active Substance: ASPIRIN
     Indication: MYOCARDIAL INFARCTION
     Dosage: 80 MILLIGRAM, OD
     Route: 048

REACTIONS (2)
  - Drug ineffective [Unknown]
  - Eye discharge [Not Recovered/Not Resolved]

NARRATIVE: CASE EVENT DATE: 20200326
